FAERS Safety Report 26191781 (Version 1)
Quarter: 2025Q4

REPORT INFORMATION
  Report Type: Spontaneous
  Country: EU (occurrence: EU)
  Receive Date: 20251223
  Receipt Date: 20251223
  Transmission Date: 20260118
  Serious: Yes (Hospitalization, Other)
  Sender: B. BRAUN MEDICAL INC.
  Company Number: EU-BBM-ES-BBM-202504926

PATIENT
  Sex: Female

DRUGS (3)
  1. BUPIVACAINE [Suspect]
     Active Substance: BUPIVACAINE
     Indication: Spinal anaesthesia
  2. FENTANYL [Suspect]
     Active Substance: FENTANYL
     Indication: Spinal anaesthesia
  3. RITODRINE [Suspect]
     Active Substance: RITODRINE
     Indication: Tocolysis
     Dosage: 0.2 MG/MIN FOR 30 MINUTES BEFORE THE ECV.

REACTIONS (1)
  - Aspiration [Unknown]
